FAERS Safety Report 24753857 (Version 1)
Quarter: 2024Q4

REPORT INFORMATION
  Report Type: Spontaneous
  Country: US (occurrence: None)
  Receive Date: 20241218
  Receipt Date: 20241218
  Transmission Date: 20250115
  Serious: Yes (Other)
  Sender: Public
  Company Number: None

PATIENT
  Age: 64 Year
  Sex: Female
  Weight: 76.5 kg

DRUGS (14)
  1. CHLORHEXIDINE GLUCONATE [Suspect]
     Active Substance: CHLORHEXIDINE GLUCONATE
     Indication: Infection prophylaxis
     Dates: start: 20241212, end: 20241213
  2. thyroid meds [Concomitant]
  3. Vitamins A, C, D, E, [Concomitant]
  4. multivitamin, [Concomitant]
  5. methylfolate, [Concomitant]
  6. arnica, [Concomitant]
  7. hypericum perforatum, [Concomitant]
  8. LVR Formula, [Concomitant]
  9. DIM plus, [Concomitant]
  10. BCQ, [Concomitant]
  11. omega-3, [Concomitant]
  12. LUTEIN [Concomitant]
     Active Substance: LUTEIN
  13. pectasol-c. [Concomitant]
  14. UNSPECIFIED INGREDIENT [Concomitant]
     Active Substance: UNSPECIFIED INGREDIENT

REACTIONS (4)
  - Contusion [None]
  - Urticaria [None]
  - Erythema [None]
  - Skin swelling [None]

NARRATIVE: CASE EVENT DATE: 20241213
